FAERS Safety Report 5911390-2 (Version None)
Quarter: 2008Q4

REPORT INFORMATION
  Report Type: 
  Country: None (occurrence: None)
  Receive Date: 20081002
  Receipt Date: 20080925
  Transmission Date: 20090506
  Serious: Yes (Other)
  Sender: FDA-Public Use
  Company Number: JPI-P-004848

PATIENT
  Age: 37 Year
  Sex: Female
  Weight: 56.6996 kg

DRUGS (5)
  1. XYREM [Suspect]
     Indication: INSOMNIA
     Dosage: 7.5 GM (3.75 GM, 2 IN 1 D), ORAL
     Route: 048
     Dates: end: 20080924
  2. DULOXETINE HYDROCHLORIDE (DULOXETINE HYDROCHLORIDE) [Concomitant]
  3. MONTELUKAST SODIUM [Concomitant]
  4. FEXOFENADINE HYDROCHLORIDE [Concomitant]
  5. DIVALPROEX SODIUM [Concomitant]

REACTIONS (3)
  - ASTHMA [None]
  - CONDITION AGGRAVATED [None]
  - CONVULSION [None]
